FAERS Safety Report 24756210 (Version 1)
Quarter: 2024Q4

REPORT INFORMATION
  Report Type: Report from Study
  Country: CO (occurrence: CO)
  Receive Date: 20241220
  Receipt Date: 20241220
  Transmission Date: 20250115
  Serious: Yes (Hospitalization, Other)
  Sender: ASTELLAS
  Company Number: CO-ASTELLAS-2024-AER-025970

PATIENT
  Age: 59 Year
  Sex: Male
  Weight: 60 kg

DRUGS (8)
  1. TACROLIMUS [Suspect]
     Active Substance: TACROLIMUS
     Indication: Renal transplant
     Dosage: PROGRAF XL 3MG (LAST DOSE 12-DEC-2024).?CHANGE TO: PROGRAF XL 2MG (START DATE 13-DEC-2024).
     Route: 048
     Dates: start: 20241213
  2. TACROLIMUS [Suspect]
     Active Substance: TACROLIMUS
     Dosage: PROGRAF XL 3MG (LAST DOSE 12-DEC-2024).?CHANGE TO: PROGRAF XL 2MG (START DATE 13-DEC-2024).
     Route: 048
     Dates: end: 20241212
  3. VERAPAMIL HYDROCHLORIDE [Concomitant]
     Active Substance: VERAPAMIL HYDROCHLORIDE
     Indication: Product used for unknown indication
     Route: 065
  4. CLOPIDOGREL [Concomitant]
     Active Substance: CLOPIDOGREL BISULFATE
     Indication: Product used for unknown indication
     Route: 065
  5. PREGABALIN [Concomitant]
     Active Substance: PREGABALIN
     Indication: Product used for unknown indication
     Route: 065
  6. MICOFENALATO [Concomitant]
     Indication: Product used for unknown indication
     Route: 065
  7. DESONEL [Concomitant]
     Indication: Product used for unknown indication
     Route: 065
  8. INSULIN NOS [Concomitant]
     Active Substance: INSULIN NOS
     Indication: Product used for unknown indication
     Route: 065

REACTIONS (4)
  - Urinary tract infection bacterial [Unknown]
  - Secondary immunodeficiency [Unknown]
  - Blood glucose increased [Unknown]
  - Immunosuppressant drug level increased [Unknown]
